FAERS Safety Report 4494438-4 (Version None)
Quarter: 2004Q4

REPORT INFORMATION
  Report Type: 
  Country: None (occurrence: None)
  Receive Date: 20041102
  Receipt Date: 20041015
  Transmission Date: 20050328
  Serious: Yes (Death, Hospitalization)
  Sender: FDA-Public Use
  Company Number: US_0409105298

PATIENT
  Age: 60 Year
  Sex: Male
  Weight: 60 kg

DRUGS (6)
  1. GEMZAR [Suspect]
     Indication: BLADDER CANCER
     Dosage: 2080 MG OTHER
     Dates: start: 20030312
  2. CISPLATIN [Concomitant]
  3. OMEPRAZOLE [Concomitant]
  4. PYRIDIUM (PHENAZOPYRIDINE HYDROCHLORIDE) [Concomitant]
  5. CIPROFLOXACIN [Concomitant]
  6. PLASIL (METOCLOPRAMIDE HYDROCHLORIDE) [Concomitant]

REACTIONS (13)
  - ANAEMIA [None]
  - ATELECTASIS [None]
  - FATIGUE [None]
  - HYPOREFLEXIA [None]
  - PAIN [None]
  - PLEURAL EFFUSION [None]
  - POLYURIA [None]
  - PROSTATIC DISORDER [None]
  - PULMONARY CALCIFICATION [None]
  - RESPIRATORY FAILURE [None]
  - URINARY TRACT INFECTION [None]
  - WEIGHT DECREASED [None]
  - WHITE BLOOD CELL COUNT INCREASED [None]
